FAERS Safety Report 12617674 (Version 2)
Quarter: 2016Q3

REPORT INFORMATION
  Report Type: Report from Study
  Country: US (occurrence: US)
  Receive Date: 20160803
  Receipt Date: 20160805
  Transmission Date: 20161109
  Serious: Yes (Hospitalization, Other)
  Sender: FDA-Public Use
  Company Number: US-AMGEN-USASL2016096898

PATIENT
  Age: 60 Year
  Sex: Male

DRUGS (10)
  1. ENBREL [Suspect]
     Active Substance: ETANERCEPT
     Dosage: 50 MG, 2 TIMES/WK
     Route: 065
  2. CERA [Concomitant]
     Dosage: UNK
  3. ENBREL [Suspect]
     Active Substance: ETANERCEPT
     Dosage: 50 MG, QWK
     Route: 065
  4. TRIAMCINOLONE [Concomitant]
     Active Substance: TRIAMCINOLONE
     Dosage: UNK
  5. ENBREL [Suspect]
     Active Substance: ETANERCEPT
     Indication: PSORIASIS
     Dosage: 50 MG, 2 TIMES/WK
     Route: 065
     Dates: start: 200406
  6. JANTOVEN [Suspect]
     Active Substance: WARFARIN SODIUM
     Indication: EMBOLISM
     Dosage: 2 MG, UNK
     Route: 065
  7. COUMADIN [Suspect]
     Active Substance: WARFARIN SODIUM
     Indication: EMBOLISM
     Dosage: 2 MG, UNK
     Route: 065
  8. COUMADIN [Suspect]
     Active Substance: WARFARIN SODIUM
     Dosage: 3 MG, UNK
     Route: 065
  9. JANTOVEN [Suspect]
     Active Substance: WARFARIN SODIUM
     Dosage: 3 MG, UNK
     Route: 065
  10. HEPARIN [Concomitant]
     Active Substance: HEPARIN SODIUM

REACTIONS (25)
  - Ulcer [Unknown]
  - Back pain [Unknown]
  - Skin atrophy [Unknown]
  - Arterial injury [Unknown]
  - Poor peripheral circulation [Unknown]
  - Myocardial infarction [Unknown]
  - Embolism [Unknown]
  - Oedema [Unknown]
  - Sternal fracture [Unknown]
  - Pulmonary haemorrhage [Unknown]
  - Dyspnoea [Unknown]
  - Memory impairment [Unknown]
  - Coma [Unknown]
  - Anxiety [Unknown]
  - Genitourinary operation [Unknown]
  - Psoriasis [Unknown]
  - Haematoma [Unknown]
  - Arthralgia [Unknown]
  - Carotid artery stenosis [Unknown]
  - Scoliosis [Unknown]
  - Skin haemorrhage [Recovering/Resolving]
  - Musculoskeletal disorder [Unknown]
  - Procedural haemorrhage [Unknown]
  - Abasia [Unknown]
  - Mobility decreased [Unknown]

NARRATIVE: CASE EVENT DATE: 2006
